FAERS Safety Report 19318770 (Version 1)
Quarter: 2021Q2

REPORT INFORMATION
  Report Type: Spontaneous
  Country: JP (occurrence: JP)
  Receive Date: 20210527
  Receipt Date: 20210527
  Transmission Date: 20210717
  Serious: Yes (Hospitalization, Other)
  Sender: FDA-Public Use
  Company Number: JP-TAKEDA-2021TUS033599

PATIENT
  Age: 48 Year
  Sex: Male

DRUGS (6)
  1. ADRENAL [Concomitant]
     Active Substance: EPINEPHRINE
     Dosage: UNK
     Route: 048
  2. GOLIMUMAB [Concomitant]
     Active Substance: GOLIMUMAB
     Indication: COLITIS ULCERATIVE
  3. LIALDA [Suspect]
     Active Substance: MESALAMINE
     Indication: COLITIS ULCERATIVE
     Dosage: 1200 MILLIGRAM
     Route: 048
  4. AZATHIOPRINE. [Concomitant]
     Active Substance: AZATHIOPRINE
     Indication: COLITIS ULCERATIVE
     Route: 065
  5. ADRENAL [Concomitant]
     Active Substance: EPINEPHRINE
     Indication: COLITIS ULCERATIVE
     Route: 065
  6. VALGANCICLOVIR HYDROCHLORIDE. [Concomitant]
     Active Substance: VALGANCICLOVIR HYDROCHLORIDE
     Indication: CYTOMEGALOVIRUS TEST POSITIVE
     Route: 065

REACTIONS (2)
  - B-cell lymphoma [Recovered/Resolved]
  - Colitis ulcerative [Recovering/Resolving]
